FAERS Safety Report 21886841 (Version 1)
Quarter: 2023Q1

REPORT INFORMATION
  Report Type: Spontaneous
  Country: US (occurrence: US)
  Receive Date: 20230119
  Receipt Date: 20230119
  Transmission Date: 20230417
  Serious: No
  Sender: FDA-Public Use
  Company Number: US-MYLANLABS-2022M1121189

PATIENT
  Age: 64 Year
  Sex: Female
  Weight: 54.43 kg

DRUGS (3)
  1. ATORVASTATIN CALCIUM [Suspect]
     Active Substance: ATORVASTATIN CALCIUM
     Indication: Product used for unknown indication
     Dosage: 80 MILLIGRAM, QD
     Route: 065
  2. PAXLOVID [Suspect]
     Active Substance: NIRMATRELVIR\RITONAVIR
     Indication: COVID-19
     Dosage: 3 DOSAGE FORM, BID (3 TABLETS IN THE MORNING AND 3 TABLETS IN THE EVENING)
     Route: 065
     Dates: start: 20221017
  3. ROSUVASTATIN [Suspect]
     Active Substance: ROSUVASTATIN
     Indication: Blood cholesterol
     Dosage: 40 MILLIGRAM, QD (40 MG TABLET ONCE A DAY)
     Route: 065

REACTIONS (5)
  - Feeling abnormal [Unknown]
  - COVID-19 [Recovered/Resolved]
  - Illness [Recovering/Resolving]
  - Gait disturbance [Recovering/Resolving]
  - Therapy cessation [Unknown]

NARRATIVE: CASE EVENT DATE: 20221027
